FAERS Safety Report 24893896 (Version 1)
Quarter: 2025Q1

REPORT INFORMATION
  Report Type: Spontaneous
  Country: SE (occurrence: SE)
  Receive Date: 20250128
  Receipt Date: 20250128
  Transmission Date: 20250409
  Serious: Yes (Other)
  Sender: ACCORD
  Company Number: None

PATIENT
  Age: 67 Year
  Sex: Male

DRUGS (9)
  1. METHOTREXATE [Suspect]
     Active Substance: METHOTREXATE
     Indication: Product used for unknown indication
     Dates: end: 20241118
  2. XALATAN [Concomitant]
     Active Substance: LATANOPROST
  3. OMEPRAZOLE [Concomitant]
     Active Substance: OMEPRAZOLE
  4. FOLIC ACID [Concomitant]
     Active Substance: FOLIC ACID
  5. GABAPENTIN [Concomitant]
     Active Substance: GABAPENTIN
  6. SARILUMAB [Concomitant]
     Active Substance: SARILUMAB
  7. ACETAMINOPHEN [Concomitant]
     Active Substance: ACETAMINOPHEN
  8. PREDNISOLONE [Concomitant]
     Active Substance: PREDNISOLONE
  9. AZARGA [Concomitant]
     Active Substance: BRINZOLAMIDE\TIMOLOL MALEATE

REACTIONS (11)
  - Decreased appetite [Unknown]
  - Iron deficiency anaemia [Unknown]
  - Serum ferritin increased [Unknown]
  - Oral mucosal blistering [Unknown]
  - Nausea [Unknown]
  - Feeling cold [Unknown]
  - Muscular weakness [Unknown]
  - Weight decreased [Unknown]
  - Salivary hypersecretion [Unknown]
  - Ear discomfort [Unknown]
  - Fatigue [Unknown]

NARRATIVE: CASE EVENT DATE: 20240101
